FAERS Safety Report 24431731 (Version 2)
Quarter: 2025Q2

REPORT INFORMATION
  Report Type: Spontaneous
  Country: DE (occurrence: DE)
  Receive Date: 20241014
  Receipt Date: 20250429
  Transmission Date: 20250716
  Serious: Yes (Hospitalization, Other)
  Sender: AUROBINDO
  Company Number: DE-ORGANON-O2409DEU002092

PATIENT
  Age: 25 Year
  Sex: Male

DRUGS (1)
  1. FINASTERIDE [Suspect]
     Active Substance: FINASTERIDE
     Indication: Alopecia
     Dosage: 1 MILLIGRAM, ONCE A DAY
     Route: 048

REACTIONS (4)
  - Depression [Recovering/Resolving]
  - Post 5-alpha-reductase inhibitor syndrome [Unknown]
  - Libido disorder [Recovering/Resolving]
  - Withdrawal syndrome [Unknown]
